FAERS Safety Report 15646192 (Version 1)
Quarter: 2018Q4

REPORT INFORMATION
  Report Type: Spontaneous
  Country: US (occurrence: US)
  Receive Date: 20181122
  Receipt Date: 20181122
  Transmission Date: 20190205
  Serious: No
  Sender: FDA-Public Use
  Company Number: US-TEVA-2018-US-976757

PATIENT

DRUGS (1)
  1. PROGLYCEM SUSPENSION [Suspect]
     Active Substance: DIAZOXIDE
     Dosage: SUSPENSION
     Route: 065

REACTIONS (4)
  - Abdominal distension [Unknown]
  - Reaction to excipient [Unknown]
  - Diarrhoea [Unknown]
  - Product formulation issue [Unknown]
